FAERS Safety Report 9296951 (Version 4)
Quarter: 2018Q2

REPORT INFORMATION
  Report Type: Spontaneous
  Country: JP (occurrence: JP)
  Receive Date: 20130518
  Receipt Date: 20180428
  Transmission Date: 20180711
  Serious: Yes (Life-Threatening, Other)
  Sender: FDA-Public Use
  Company Number: JP-ROCHE-1224715

PATIENT
  Age: 71 Year
  Sex: Female
  Weight: 52 kg

DRUGS (3)
  1. AVASTIN [Suspect]
     Active Substance: BEVACIZUMAB
     Indication: BREAST CANCER METASTATIC
     Route: 041
     Dates: start: 20120907, end: 20130220
  2. XELODA [Suspect]
     Active Substance: CAPECITABINE
     Indication: BREAST CANCER METASTATIC
     Route: 048
     Dates: start: 20130318, end: 20130423
  3. AVASTIN [Suspect]
     Active Substance: BEVACIZUMAB
     Indication: BREAST CANCER METASTATIC
     Route: 041
     Dates: start: 20120727, end: 20120810

REACTIONS (3)
  - Hypoaesthesia [Recovered/Resolved]
  - Neutropenia [Recovered/Resolved]
  - Aortic dissection [Recovered/Resolved]

NARRATIVE: CASE EVENT DATE: 20130426
